FAERS Safety Report 12667016 (Version 1)
Quarter: 2016Q3

REPORT INFORMATION
  Report Type: Spontaneous
  Country: US (occurrence: None)
  Receive Date: 20160818
  Receipt Date: 20160818
  Transmission Date: 20161109
  Serious: Yes (Other)
  Sender: FDA-Public Use
  Company Number: None

PATIENT
  Age: 65 Year
  Sex: Female
  Weight: 76.66 kg

DRUGS (10)
  1. LABETELOL [Concomitant]
  2. NOVOLOG [Concomitant]
     Active Substance: INSULIN ASPART
  3. LEVEMIR [Concomitant]
     Active Substance: INSULIN DETEMIR
  4. LISINOPRIL. [Concomitant]
     Active Substance: LISINOPRIL
  5. VITAMINS NOS [Concomitant]
     Active Substance: VITAMINS
  6. AURYXIA [Suspect]
     Active Substance: TETRAFERRIC TRICITRATE DECAHYDRATE
     Indication: END STAGE RENAL DISEASE
     Dosage: 7 TABLET(S) THREE TIMES A DAY TAKEN BY MOUTH
     Route: 048
     Dates: start: 20160731, end: 20160802
  7. FUROSEMIDE. [Concomitant]
     Active Substance: FUROSEMIDE
  8. ATORVASTATIN [Concomitant]
     Active Substance: ATORVASTATIN
  9. AMLODOPINE [Concomitant]
     Active Substance: AMLODIPINE BESYLATE
  10. ALIGN [Concomitant]
     Active Substance: BIFIDOBACTERIUM LONGUM SUBSP. INFANTIS

REACTIONS (4)
  - Grip strength decreased [None]
  - Muscle disorder [None]
  - Gastrointestinal disorder [None]
  - Dysstasia [None]

NARRATIVE: CASE EVENT DATE: 20160802
